FAERS Safety Report 12617748 (Version 2)
Quarter: 2016Q3

REPORT INFORMATION
  Report Type: Spontaneous
  Country: US (occurrence: US)
  Receive Date: 20160803
  Receipt Date: 20160805
  Transmission Date: 20161109
  Serious: Yes (Hospitalization)
  Sender: FDA-Public Use
  Company Number: US-PFIZER INC-2016344940

PATIENT
  Sex: Female

DRUGS (3)
  1. ESTRING [Suspect]
     Active Substance: ESTRADIOL
     Indication: MENSTRUAL DISORDER
     Dosage: 1 DF, EVERY 3 MONTHS
     Dates: start: 20160421
  2. ESTRING [Suspect]
     Active Substance: ESTRADIOL
     Indication: UTERINE DISORDER
  3. ESTRING [Suspect]
     Active Substance: ESTRADIOL
     Indication: UTERINE HAEMORRHAGE

REACTIONS (4)
  - Vulvovaginal pain [Not Recovered/Not Resolved]
  - Vulvovaginal burning sensation [Not Recovered/Not Resolved]
  - Abdominal discomfort [Not Recovered/Not Resolved]
  - Vaginal infection [Unknown]
